FAERS Safety Report 16791215 (Version 4)
Quarter: 2020Q3

REPORT INFORMATION
  Report Type: Spontaneous
  Country: US (occurrence: US)
  Receive Date: 20190910
  Receipt Date: 20200903
  Transmission Date: 20201102
  Serious: No
  Sender: FDA-Public Use
  Company Number: US-PERRIGO-19US000535

PATIENT
  Age: 64 Year
  Sex: Female
  Weight: 71.2 kg

DRUGS (5)
  1. EVAMIST [Suspect]
     Active Substance: ESTRADIOL
     Dosage: UNKNOWN, NIGHTLY
     Route: 062
     Dates: start: 201909, end: 20190911
  2. EVAMIST [Suspect]
     Active Substance: ESTRADIOL
     Indication: HORMONE REPLACEMENT THERAPY
     Dosage: UNKNOWN, QD
     Route: 062
     Dates: start: 20181210, end: 20190116
  3. EVAMIST [Suspect]
     Active Substance: ESTRADIOL
     Dosage: 1.53 MG, NIGHTLY
     Route: 062
     Dates: start: 20190901, end: 201909
  4. PROTONIX                           /00661201/ [Concomitant]
     Active Substance: OMEPRAZOLE
     Indication: GASTROOESOPHAGEAL REFLUX DISEASE
     Dosage: UNK
     Route: 065
     Dates: start: 2012
  5. EVAMIST [Suspect]
     Active Substance: ESTRADIOL
     Indication: MENOPAUSAL SYMPTOMS
     Dosage: 1.53 MG, QD
     Route: 062
     Dates: end: 20181209

REACTIONS (3)
  - Inappropriate schedule of product administration [Recovered/Resolved]
  - Incorrect dose administered [Recovered/Resolved]
  - Headache [Recovered/Resolved]

NARRATIVE: CASE EVENT DATE: 20181210
